FAERS Safety Report 9233496 (Version 1)
Quarter: 2013Q2

REPORT INFORMATION
  Report Type: Spontaneous
  Country: JP (occurrence: JP)
  Receive Date: 20130416
  Receipt Date: 20130416
  Transmission Date: 20140414
  Serious: Yes (Death)
  Sender: FDA-Public Use
  Company Number: JP-BRISTOL-MYERS SQUIBB COMPANY-18760421

PATIENT
  Age: 62 Year
  Sex: Female

DRUGS (4)
  1. ERBITUX SOLN FOR INF 5MG/ML [Suspect]
     Indication: COLORECTAL CANCER
     Route: 041
     Dates: start: 20121219, end: 20130319
  2. 5-FLUOROURACIL [Concomitant]
     Indication: COLORECTAL CANCER
     Route: 041
     Dates: start: 20121219, end: 20130319
  3. LEUCOVORIN [Concomitant]
     Indication: COLORECTAL CANCER
     Route: 041
     Dates: start: 20121219, end: 20130319
  4. ELPLAT [Concomitant]
     Indication: COLORECTAL CANCER
     Route: 041
     Dates: start: 20121219, end: 20130319

REACTIONS (1)
  - Pulmonary infarction [Fatal]
